FAERS Safety Report 8811362 (Version 1)
Quarter: 2012Q4

REPORT INFORMATION
  Report Type: 
  Country: US (occurrence: US)
  Receive Date: 20120927
  Receipt Date: 20120927
  Transmission Date: 20130627
  Serious: No
  Sender: FDA-Public Use
  Company Number: US-BAYER-2012-100418

PATIENT
  Age: 81 Year
  Sex: Female
  Weight: 74.83 kg

DRUGS (4)
  1. ALEVE CAPLET/TABLET,MIDOL EXTENDED RELIEF CAPLET [Suspect]
     Dosage: 1 DF, PRN
     Route: 048
     Dates: start: 20120901, end: 20120919
  2. COREG [Concomitant]
  3. HYZAAR [Concomitant]
  4. INSULIN [Concomitant]

REACTIONS (1)
  - Blood glucose increased [Recovered/Resolved]
